FAERS Safety Report 24879585 (Version 2)
Quarter: 2025Q1

REPORT INFORMATION
  Report Type: Spontaneous
  Country: US (occurrence: US)
  Receive Date: 20250123
  Receipt Date: 20250217
  Transmission Date: 20250409
  Serious: Yes (Hospitalization)
  Sender: SYNDAX
  Company Number: US-SYNDAX PHARMACEUTICALS, INC.-2025US000050

PATIENT
  Sex: Male

DRUGS (1)
  1. REVUFORJ [Suspect]
     Active Substance: REVUMENIB CITRATE
     Indication: Acute myeloid leukaemia
     Dosage: 110 MG TABLET-TAKE 0.25 MILLIGRAM, BID, G-TUBE
     Route: 048
     Dates: start: 20250113, end: 202502

REACTIONS (5)
  - White blood cell count abnormal [Unknown]
  - Red blood cell count abnormal [Unknown]
  - Mood altered [Unknown]
  - Drug ineffective [Unknown]
  - Vomiting [Unknown]
